FAERS Safety Report 8284957-7 (Version None)
Quarter: 2012Q2

REPORT INFORMATION
  Report Type: 
  Country: None (occurrence: None)
  Receive Date: 20120413
  Receipt Date: 20110613
  Transmission Date: 20120825
  Serious: No
  Sender: FDA-Public Use
  Company Number: US-ASTRAZENECA-2011SE32797

PATIENT
  Sex: Female
  Weight: 62.1 kg

DRUGS (1)
  1. NEXIUM [Suspect]
     Indication: HAEMATOCHEZIA
     Route: 048
     Dates: start: 20110524

REACTIONS (2)
  - OFF LABEL USE [None]
  - FAECES DISCOLOURED [None]
